FAERS Safety Report 5285369-0 (Version None)
Quarter: 2007Q2

REPORT INFORMATION
  Report Type: 
  Country: None (occurrence: None)
  Receive Date: 20070403
  Receipt Date: 20070321
  Transmission Date: 20071010
  Serious: Yes (Disabling)
  Sender: FDA-Public Use
  Company Number: CA-SHR-CA-2007-010002

PATIENT
  Age: 48 Year
  Sex: Male

DRUGS (1)
  1. BETASERON [Suspect]
     Indication: RELAPSING-REMITTING MULTIPLE SCLEROSIS
     Dosage: 9.6 MIU, 2X/WEEK
     Route: 058
     Dates: start: 20040405, end: 20061101

REACTIONS (2)
  - OPTIC NEURITIS [None]
  - UNEVALUABLE EVENT [None]
